FAERS Safety Report 19929032 (Version 1)
Quarter: 2021Q4

REPORT INFORMATION
  Report Type: Spontaneous
  Country: US (occurrence: US)
  Receive Date: 20211007
  Receipt Date: 20211007
  Transmission Date: 20220303
  Serious: No
  Sender: FDA-Public Use
  Company Number: US-RECORDATI RARE DISEASES INC.-2021002577

PATIENT
  Sex: Female

DRUGS (4)
  1. PANHEMATIN [Suspect]
     Active Substance: HEMIN
     Indication: Prophylaxis
     Dosage: UNK UNK, UNK
     Route: 065
  2. PANHEMATIN [Suspect]
     Active Substance: HEMIN
     Indication: Porphyria acute
  3. GIVLAARI [Concomitant]
     Active Substance: GIVOSIRAN SODIUM
     Indication: Prophylaxis
     Dosage: UNK UNK, UNK
     Route: 065
  4. GIVLAARI [Concomitant]
     Active Substance: GIVOSIRAN SODIUM
     Indication: Porphyria acute

REACTIONS (1)
  - Exposure during pregnancy [Unknown]
